FAERS Safety Report 14171323 (Version 3)
Quarter: 2020Q3

REPORT INFORMATION
  Report Type: Spontaneous
  Country: US (occurrence: US)
  Receive Date: 20171108
  Receipt Date: 20200904
  Transmission Date: 20201102
  Serious: Yes (Hospitalization, Other)
  Sender: FDA-Public Use
  Company Number: US-SA-2016SA120399

PATIENT

DRUGS (3)
  1. LANTUS SOLOSTAR [Suspect]
     Active Substance: INSULIN GLARGINE
     Indication: TYPE 2 DIABETES MELLITUS
     Dosage: 35 DF,BID
     Route: 051
     Dates: start: 2006
  2. INVOKANA [Concomitant]
     Active Substance: CANAGLIFLOZIN
     Dosage: UNK
     Route: 065
  3. LANTUS SOLOSTAR [Suspect]
     Active Substance: INSULIN GLARGINE
     Dosage: 28 IU AM 28 IU PM,BID
     Route: 065

REACTIONS (9)
  - Weight decreased [Unknown]
  - Product storage error [Unknown]
  - Leg amputation [Unknown]
  - Inappropriate schedule of product administration [Unknown]
  - Injection site injury [Unknown]
  - Device issue [Unknown]
  - Foot operation [Unknown]
  - Limb operation [Unknown]
  - Postoperative wound infection [Unknown]

NARRATIVE: CASE EVENT DATE: 2006
